FAERS Safety Report 17538612 (Version 1)
Quarter: 2020Q1

REPORT INFORMATION
  Report Type: Spontaneous
  Country: US (occurrence: US)
  Receive Date: 20200313
  Receipt Date: 20200313
  Transmission Date: 20200409
  Serious: Yes (Hospitalization)
  Sender: FDA-Public Use
  Company Number: None

PATIENT
  Age: 61 Year
  Sex: Male

DRUGS (12)
  1. CIMZIA [Suspect]
     Active Substance: CERTOLIZUMAB PEGOL
     Indication: HYPERTENSIVE NEPHROPATHY
     Dosage: ?          OTHER FREQUENCY:MONTHLY;?
     Route: 058
     Dates: start: 20180201
  2. BETHAMETH DIP [Concomitant]
  3. CHLOESTYRAM [Concomitant]
  4. ESMOEPRA [Concomitant]
  5. HUMALOG [Concomitant]
     Active Substance: INSULIN LISPRO
  6. HYDROCHLOROT [Concomitant]
     Active Substance: HYDROCHLOROTHIAZIDE
  7. DAKINS FULL [Concomitant]
     Active Substance: SODIUM HYPOCHLORITE
  8. MONTELUKAST [Concomitant]
     Active Substance: MONTELUKAST SODIUM
  9. DULOXETINE. [Concomitant]
     Active Substance: DULOXETINE
  10. CLONIDINE. [Concomitant]
     Active Substance: CLONIDINE
  11. BUDESONIDE. [Concomitant]
     Active Substance: BUDESONIDE
  12. AMLODIPINE [Concomitant]
     Active Substance: AMLODIPINE BESYLATE

REACTIONS (3)
  - Crohn^s disease [None]
  - Psoriasis [None]
  - Clostridium difficile infection [None]
